FAERS Safety Report 6728719-8 (Version None)
Quarter: 2010Q2

REPORT INFORMATION
  Report Type: 
  Country: None (occurrence: None)
  Receive Date: 20100517
  Receipt Date: 20100507
  Transmission Date: 20101027
  Serious: Yes (Other)
  Sender: FDA-Public Use
  Company Number: DE-ABBOTT-10P-062-0643147-00

PATIENT

DRUGS (1)
  1. ERGENYL [Suspect]
     Indication: DRUG USE FOR UNKNOWN INDICATION

REACTIONS (7)
  - ANAEMIA [None]
  - GAIT DISTURBANCE [None]
  - IMMUNOGLOBULINS DECREASED [None]
  - LYMPHADENOPATHY [None]
  - OEDEMA [None]
  - PARANEOPLASTIC SYNDROME [None]
  - PERFORMANCE STATUS DECREASED [None]
